FAERS Safety Report 8309287-6 (Version None)
Quarter: 2012Q2

REPORT INFORMATION
  Report Type: 
  Country: None (occurrence: None)
  Receive Date: 20120424
  Receipt Date: 20120416
  Transmission Date: 20120825
  Serious: Yes (Other)
  Sender: FDA-Public Use
  Company Number: TR-AMGEN-TURSP2012007650

PATIENT
  Age: 37 Year
  Sex: Male

DRUGS (1)
  1. ENBREL [Suspect]
     Indication: ANKYLOSING SPONDYLITIS
     Dosage: 25 MG, 2X/WEEK
     Route: 058
     Dates: start: 20110722, end: 20110801

REACTIONS (7)
  - DYSPNOEA [None]
  - DIZZINESS [None]
  - PYREXIA [None]
  - PALPITATIONS [None]
  - LUNG DISORDER [None]
  - HYPERSENSITIVITY [None]
  - TACHYCARDIA [None]
